FAERS Safety Report 22109655 (Version 1)
Quarter: 2023Q1

REPORT INFORMATION
  Report Type: Spontaneous
  Country: FR (occurrence: None)
  Receive Date: 20230317
  Receipt Date: 20230317
  Transmission Date: 20230417
  Serious: Yes (Life-Threatening)
  Sender: FDA-Public Use
  Company Number: 2023A060708

PATIENT
  Age: 25 Year
  Sex: Female

DRUGS (6)
  1. QUETIAPINE [Suspect]
     Active Substance: QUETIAPINE
     Dosage: 9 CP 400 MG1.0DF UNKNOWN
     Dates: start: 20221129, end: 20221129
  2. COCAINE [Suspect]
     Active Substance: COCAINE
     Dosage: 1,5G/J
     Route: 045
  3. HERBALS [Suspect]
     Active Substance: HERBALS
     Dosage: 20 JOINTS/J
  4. CYAMEMAZINE [Suspect]
     Active Substance: CYAMEMAZINE
     Dosage: 60 CP 25 MG1.0DF UNKNOWN
     Dates: start: 20221129, end: 20221129
  5. VALIUM [Suspect]
     Active Substance: DIAZEPAM
     Dosage: 10 CP 10 MG1.0DF UNKNOWN
     Dates: start: 20221129, end: 20221129
  6. TIAPRIDE HYDROCHLORIDE [Suspect]
     Active Substance: TIAPRIDE HYDROCHLORIDE
     Dosage: 10 CP 100 MG1.0DF UNKNOWN
     Dates: start: 20221129, end: 20221129

REACTIONS (2)
  - Drug abuse [Not Recovered/Not Resolved]
  - Suicide attempt [Recovered/Resolved]

NARRATIVE: CASE EVENT DATE: 20221129
